FAERS Safety Report 6092418-9 (Version None)
Quarter: 2009Q1

REPORT INFORMATION
  Report Type: 
  Country: None (occurrence: None)
  Receive Date: 20090225
  Receipt Date: 20090213
  Transmission Date: 20090719
  Serious: Yes (Life-Threatening, Other)
  Sender: FDA-Public Use
  Company Number: TR-AVENTIS-200911360GDDC

PATIENT
  Age: 46 Year
  Sex: Male
  Weight: 90 kg

DRUGS (5)
  1. KETEK [Suspect]
     Indication: RESPIRATORY TRACT INFECTION
     Dates: start: 20081225, end: 20090104
  2. ANTIOBESITY PREPARATIONS, EXCL DIET PRODUCTS [Suspect]
     Dosage: DOSE: 2X2
     Route: 048
     Dates: start: 20080112, end: 20081225
  3. UNKNOWN DRUG [Concomitant]
     Dosage: DOSE: 1X1
     Route: 048
  4. ASIST [Concomitant]
     Indication: BRONCHITIS
     Dosage: DOSE: 1X1
     Route: 048
  5. SINECOD [Concomitant]
     Indication: BRONCHITIS
     Dosage: DOSE: 2X1
     Route: 048

REACTIONS (9)
  - ACUTE PRERENAL FAILURE [None]
  - ATRIAL FIBRILLATION [None]
  - CARDIOMYOPATHY [None]
  - CORONARY ARTERY DISEASE [None]
  - COXSACKIE VIRAL INFECTION [None]
  - HEPATOTOXICITY [None]
  - ISCHAEMIC HEPATITIS [None]
  - MULTI-ORGAN FAILURE [None]
  - SYNCOPE [None]
